FAERS Safety Report 16698854 (Version 1)
Quarter: 2019Q3

REPORT INFORMATION
  Report Type: Spontaneous
  Country: US (occurrence: US)
  Receive Date: 20190813
  Receipt Date: 20190813
  Transmission Date: 20191004
  Serious: No
  Sender: FDA-Public Use
  Company Number: US-PERRIGO-18US007472

PATIENT
  Age: 79 Year
  Sex: Female
  Weight: 58.96 kg

DRUGS (10)
  1. LORATADINE. [Suspect]
     Active Substance: LORATADINE
     Indication: INCREASED UPPER AIRWAY SECRETION
  2. LORATADINE. [Suspect]
     Active Substance: LORATADINE
     Indication: SINUS DISORDER
  3. LORATADINE. [Suspect]
     Active Substance: LORATADINE
     Indication: LACRIMATION INCREASED
     Dosage: 10 MG, TWICE IN 12 HOURS
     Route: 048
     Dates: start: 20180718, end: 20180718
  4. RANITIDINE. [Concomitant]
     Active Substance: RANITIDINE
     Indication: HIATUS HERNIA
     Dosage: 75 MG, UNKNOWN
     Route: 048
  5. THYROID THERAPY [Concomitant]
     Active Substance: UNSPECIFIED INGREDIENT
     Indication: HYPERTHYROIDISM
     Dosage: UNK
     Route: 065
  6. LORATADINE. [Suspect]
     Active Substance: LORATADINE
     Indication: RHINORRHOEA
     Dosage: 10 MG, SINGLE
     Route: 048
     Dates: start: 20180717, end: 20180717
  7. LORATADINE. [Suspect]
     Active Substance: LORATADINE
     Indication: BRONCHITIS
  8. DIURETICS [Concomitant]
     Active Substance: UNSPECIFIED INGREDIENT
     Indication: FLUID RETENTION
     Dosage: UNK
     Route: 065
  9. LIPID MODIFYING AGENTS [Concomitant]
     Active Substance: UNSPECIFIED INGREDIENT
     Indication: BLOOD CHOLESTEROL INCREASED
     Dosage: UNK
     Route: 065
  10. ANTIHYPERTENSIVES [Concomitant]
     Active Substance: UNSPECIFIED INGREDIENT
     Indication: HYPERTENSION
     Dosage: UNK
     Route: 065

REACTIONS (1)
  - Drug ineffective for unapproved indication [Unknown]

NARRATIVE: CASE EVENT DATE: 20180717
